FAERS Safety Report 7601771-3 (Version None)
Quarter: 2011Q2

REPORT INFORMATION
  Report Type: 
  Country: None (occurrence: None)
  Receive Date: 20110630
  Receipt Date: 20110615
  Transmission Date: 20111010
  Serious: Yes (Other)
  Sender: FDA-Public Use
  Company Number: ALK_01718_2011

PATIENT
  Sex: Female

DRUGS (5)
  1. LEVOTHYROXINE [Concomitant]
  2. DESVENLAFAXINE [Concomitant]
  3. VIVITROL [Suspect]
     Indication: ALCOHOLISM
     Dosage: INTRAMUSCULAR
     Route: 030
     Dates: start: 20110407
  4. CRESTOR [Concomitant]
  5. WELLBUTRIN [Concomitant]

REACTIONS (1)
  - REPRODUCTIVE TRACT DISORDER [None]
